FAERS Safety Report 8826145 (Version 1)
Quarter: 2012Q4

REPORT INFORMATION
  Report Type: 
  Country: US (occurrence: US)
  Receive Date: 20121008
  Receipt Date: 20121008
  Transmission Date: 20130627
  Serious: Yes (Other)
  Sender: FDA-Public Use
  Company Number: US-JNJFOC-20120912463

PATIENT
  Sex: Male
  Weight: 73.9 kg

DRUGS (19)
  1. BENADRYL [Suspect]
     Indication: PREMEDICATION
     Route: 048
     Dates: start: 20120905, end: 20120905
  2. BENADRYL [Suspect]
     Indication: PREMEDICATION
     Route: 048
     Dates: start: 20120802, end: 20120802
  3. BENADRYL [Suspect]
     Indication: PREMEDICATION
     Route: 048
     Dates: start: 20120821, end: 20120821
  4. TYLENOL [Suspect]
     Route: 048
  5. TYLENOL [Suspect]
     Indication: PREMEDICATION
     Route: 048
     Dates: start: 20120902, end: 20120905
  6. KRYSTEXXA [Suspect]
     Indication: GOUT
     Route: 042
     Dates: start: 20120905, end: 20120905
  7. KRYSTEXXA [Suspect]
     Indication: GOUT
     Route: 042
     Dates: start: 20120821, end: 20120821
  8. KRYSTEXXA [Suspect]
     Indication: GOUT
     Route: 042
     Dates: start: 20120802, end: 20120802
  9. SOLU-CORTEF [Concomitant]
     Indication: PREMEDICATION
     Route: 065
  10. METHYLPREDNISOLONE [Concomitant]
     Indication: PREMEDICATION
     Route: 065
  11. DIURETICS [Concomitant]
     Route: 065
  12. ANTI HYPERTENSIVES [Concomitant]
     Route: 065
  13. METOPROLOL [Concomitant]
     Route: 065
  14. PLAVIX [Concomitant]
     Route: 065
  15. HYDROCHLOROTHIAZIDE [Concomitant]
     Route: 065
  16. LIPITOR [Concomitant]
     Route: 065
  17. HYDROCODONE [Concomitant]
     Route: 065
  18. PREDNISONE [Concomitant]
     Route: 065
  19. ASPIRIN [Concomitant]
     Route: 065

REACTIONS (9)
  - Blood pressure systolic decreased [Unknown]
  - Unresponsive to stimuli [Recovered/Resolved]
  - Oxygen saturation decreased [Recovering/Resolving]
  - Anaphylactic reaction [Unknown]
  - Dry skin [Unknown]
  - Asthenia [Unknown]
  - Hypersomnia [Recovering/Resolving]
  - Somnolence [Recovering/Resolving]
  - Off label use [Unknown]
